FAERS Safety Report 21193532 (Version 1)
Quarter: 2022Q3

REPORT INFORMATION
  Report Type: Report from Study
  Country: PR (occurrence: PR)
  Receive Date: 20220810
  Receipt Date: 20220810
  Transmission Date: 20221027
  Serious: Yes (Other)
  Sender: FDA-Public Use
  Company Number: PR-ABBVIE-22K-131-4499409-00

PATIENT
  Sex: Female

DRUGS (1)
  1. HUMIRA [Suspect]
     Active Substance: ADALIMUMAB
     Indication: Colitis
     Route: 058
     Dates: start: 20211105, end: 202205

REACTIONS (2)
  - Plasma cell myeloma [Not Recovered/Not Resolved]
  - Immunoglobulins increased [Unknown]

NARRATIVE: CASE EVENT DATE: 20220601
